FAERS Safety Report 7461176-5 (Version None)
Quarter: 2011Q2

REPORT INFORMATION
  Report Type: 
  Country: None (occurrence: None)
  Receive Date: 20110505
  Receipt Date: 20110426
  Transmission Date: 20111010
  Serious: Yes (Other)
  Sender: FDA-Public Use
  Company Number: US-ABBOTT-11P-163-0716050-00

PATIENT
  Sex: Female
  Weight: 89.892 kg

DRUGS (18)
  1. HUMIRA [Suspect]
     Indication: ANKYLOSING SPONDYLITIS
     Dates: start: 20011101, end: 20081007
  2. CITALOPRAM [Concomitant]
     Indication: PRODUCT USED FOR UNKNOWN INDICATION
  3. HUMIRA [Suspect]
     Indication: CROHN'S DISEASE
     Dates: start: 20100501, end: 20100801
  4. CALCIUM 600 + D [Concomitant]
     Indication: PRODUCT USED FOR UNKNOWN INDICATION
  5. FLUTICASONE [Concomitant]
     Indication: PRODUCT USED FOR UNKNOWN INDICATION
     Route: 045
  6. MELATONIN [Concomitant]
     Indication: PRODUCT USED FOR UNKNOWN INDICATION
  7. MELOXICAM [Concomitant]
     Indication: PRODUCT USED FOR UNKNOWN INDICATION
  8. HUMIRA [Suspect]
     Dates: end: 20100815
  9. SINGULAIR [Concomitant]
     Indication: PRODUCT USED FOR UNKNOWN INDICATION
  10. MULTI-VITAMIN [Concomitant]
     Indication: VITAMIN SUPPLEMENTATION
  11. CELEBREX [Concomitant]
     Indication: PRODUCT USED FOR UNKNOWN INDICATION
  12. CLINDAMYCIN [Concomitant]
     Indication: PRODUCT USED FOR UNKNOWN INDICATION
     Dates: start: 20101202
  13. MECLIZINE [Concomitant]
     Indication: DIZZINESS
  14. AIR NASAL SPRAY [Concomitant]
     Indication: PRODUCT USED FOR UNKNOWN INDICATION
     Dosage: 3-4 TIMES PER DAY
     Route: 045
  15. MELATONIN [Concomitant]
     Dosage: EVERY PM
  16. PENTASA [Concomitant]
     Indication: PRODUCT USED FOR UNKNOWN INDICATION
     Dates: start: 20101001
  17. PRIMATENE MIST [Concomitant]
     Indication: PRODUCT USED FOR UNKNOWN INDICATION
  18. XYZAL [Concomitant]
     Indication: PRODUCT USED FOR UNKNOWN INDICATION

REACTIONS (24)
  - SCAR [None]
  - FATIGUE [None]
  - PAIN [None]
  - GAIT DISTURBANCE [None]
  - WOUND [None]
  - ANKYLOSING SPONDYLITIS [None]
  - HAEMORRHAGE [None]
  - STAPHYLOCOCCAL INFECTION [None]
  - BACK PAIN [None]
  - ILEITIS [None]
  - OPEN WOUND [None]
  - HYPERSENSITIVITY [None]
  - SINUSITIS [None]
  - MUSCULOSKELETAL STIFFNESS [None]
  - ACTIVITIES OF DAILY LIVING IMPAIRED [None]
  - COLITIS [None]
  - UNEVALUABLE EVENT [None]
  - WOUND COMPLICATION [None]
  - BLOOD TEST ABNORMAL [None]
  - DIARRHOEA [None]
  - FALL [None]
  - WOUND INFECTION STAPHYLOCOCCAL [None]
  - BALANCE DISORDER [None]
  - INFECTION [None]
